FAERS Safety Report 6071271-3 (Version None)
Quarter: 2009Q1

REPORT INFORMATION
  Report Type: 
  Country: None (occurrence: None)
  Receive Date: 20090204
  Receipt Date: 20080731
  Transmission Date: 20090719
  Serious: Yes (Other)
  Sender: FDA-Public Use
  Company Number: 2009BI003300

PATIENT
  Age: 62 Year

DRUGS (3)
  1. ZEVALIN [Suspect]
     Indication: NON-HODGKIN'S LYMPHOMA
     Dosage: 0.4  MCG/KG;1X;IV
     Route: 042
  2. RITUXIMAB (CON.) [Concomitant]
  3. CHEMOTHERAPY (NOS) (PREV.) [Concomitant]

REACTIONS (2)
  - BASAL CELL CARCINOMA [None]
  - MALIGNANT NEOPLASM OF EYELID [None]
